FAERS Safety Report 10015288 (Version 3)
Quarter: 2014Q2

REPORT INFORMATION
  Report Type: Spontaneous
  Country: US (occurrence: US)
  Receive Date: 20140317
  Receipt Date: 20140428
  Transmission Date: 20141212
  Serious: No
  Sender: FDA-Public Use
  Company Number: US-PFIZER INC-2014072181

PATIENT
  Age: 61 Year
  Sex: Female

DRUGS (2)
  1. XALKORI [Suspect]
     Indication: NON-SMALL CELL LUNG CANCER
     Dosage: 250 MG, 2X/DAY (1 CAPSULE)
     Dates: start: 201401, end: 201402
  2. XALKORI [Suspect]
     Dosage: 250 MG, 1X/DAY
     Dates: start: 20140227

REACTIONS (14)
  - Diarrhoea [Unknown]
  - Epistaxis [Unknown]
  - Peripheral swelling [Unknown]
  - Constipation [Unknown]
  - Nausea [Unknown]
  - Fatigue [Unknown]
  - Asthenia [Unknown]
  - Decreased appetite [Unknown]
  - Pain [Unknown]
  - Skin warm [Unknown]
  - Chills [Unknown]
  - Back pain [Unknown]
  - Abdominal tenderness [Unknown]
  - Dysgeusia [Unknown]
